FAERS Safety Report 17911470 (Version 1)
Quarter: 2020Q2

REPORT INFORMATION
  Report Type: Spontaneous
  Country: US (occurrence: US)
  Receive Date: 20200618
  Receipt Date: 20200618
  Transmission Date: 20200714
  Serious: No
  Sender: FDA-Public Use
  Company Number: None

PATIENT
  Age: 82 Year
  Sex: Male
  Weight: 131.8 kg

DRUGS (21)
  1. ATORVASTATIN [Concomitant]
     Active Substance: ATORVASTATIN
  2. AMBIEN [Concomitant]
     Active Substance: ZOLPIDEM TARTRATE
  3. MVI [Concomitant]
     Active Substance: VITAMINS
  4. FLOMAX [Concomitant]
     Active Substance: TAMSULOSIN HYDROCHLORIDE
  5. ERLEADA [Suspect]
     Active Substance: APALUTAMIDE
     Indication: PROSTATE CANCER
     Route: 048
     Dates: start: 20200529
  6. LISINOPRIL. [Concomitant]
     Active Substance: LISINOPRIL
  7. LORAZEPAM. [Concomitant]
     Active Substance: LORAZEPAM
  8. ECONAZOLE. [Concomitant]
     Active Substance: ECONAZOLE NITRATE
  9. ELIGARD [Concomitant]
     Active Substance: LEUPROLIDE ACETATE
  10. FLONASE [Concomitant]
     Active Substance: FLUTICASONE PROPIONATE
  11. MUPIROCIN. [Concomitant]
     Active Substance: MUPIROCIN
  12. OXYCODONE [Concomitant]
     Active Substance: OXYCODONE
  13. VITAMIN E [Concomitant]
     Active Substance: .ALPHA.-TOCOPHEROL
  14. AUGMENTIN [Concomitant]
     Active Substance: AMOXICILLIN\CLAVULANATE POTASSIUM
  15. CASODEX [Concomitant]
     Active Substance: BICALUTAMIDE
  16. LUPRON [Concomitant]
     Active Substance: LEUPROLIDE ACETATE
  17. ASPIRIN. [Concomitant]
     Active Substance: ASPIRIN
  18. COLCHICINE. [Concomitant]
     Active Substance: COLCHICINE
  19. GLUCOSAMINE, CHONDROITIN, MSM [Concomitant]
  20. LORATADINE. [Concomitant]
     Active Substance: LORATADINE
  21. TYLENOL [Concomitant]
     Active Substance: ACETAMINOPHEN

REACTIONS (1)
  - Weight increased [None]

NARRATIVE: CASE EVENT DATE: 20200618
